FAERS Safety Report 8580373-9 (Version None)
Quarter: 2012Q3

REPORT INFORMATION
  Report Type: 
  Country: None (occurrence: None)
  Receive Date: 20120808
  Receipt Date: 20120730
  Transmission Date: 20120928
  Serious: Yes (Hospitalization, Other)
  Sender: FDA-Public Use
  Company Number: US-ELI_LILLY_AND_COMPANY-US201208000403

PATIENT
  Sex: Female
  Weight: 47.166 kg

DRUGS (4)
  1. BYETTA [Suspect]
     Route: 058
  2. LANTUS [Concomitant]
  3. IRON [Concomitant]
  4. BLOOD TRANSFUSION, AUXILIARY PRODUCTS [Concomitant]

REACTIONS (4)
  - TRANSFUSION [None]
  - PNEUMONIA [None]
  - WEIGHT DECREASED [None]
  - DRUG EFFECT DECREASED [None]
